FAERS Safety Report 21603432 (Version 1)
Quarter: 2022Q4

REPORT INFORMATION
  Report Type: Spontaneous
  Country: CA (occurrence: CA)
  Receive Date: 20221116
  Receipt Date: 20221116
  Transmission Date: 20230113
  Serious: Yes (Other)
  Sender: FDA-Public Use
  Company Number: CA-VIIV HEALTHCARE ULC-CA2022AMR165694

PATIENT

DRUGS (6)
  1. MARAVIROC [Suspect]
     Active Substance: MARAVIROC
     Indication: Product used for unknown indication
     Dosage: 300 MG, BID
     Route: 048
     Dates: start: 20220421
  2. MARAVIROC [Suspect]
     Active Substance: MARAVIROC
     Dosage: 300 MG, BID
     Route: 048
     Dates: start: 20220701, end: 20220908
  3. PRAVASTATIN [Suspect]
     Active Substance: PRAVASTATIN
     Indication: Product used for unknown indication
     Dosage: 10 MG, QD
     Route: 048
     Dates: start: 20220421
  4. PRAVASTATIN [Suspect]
     Active Substance: PRAVASTATIN
     Dosage: 10 MG, QD
     Route: 048
     Dates: start: 20220701, end: 20220821
  5. PLAVIX [Suspect]
     Active Substance: CLOPIDOGREL BISULFATE
     Indication: Tinnitus
     Dosage: 75 MG, QD
     Route: 048
     Dates: start: 20220421
  6. PLAVIX [Suspect]
     Active Substance: CLOPIDOGREL BISULFATE
     Indication: Noninfective encephalitis
     Dosage: 75 MG, QD
     Route: 048
     Dates: start: 20220701, end: 20220821

REACTIONS (16)
  - Noninfective encephalitis [Unknown]
  - Pain [Unknown]
  - Discomfort [Unknown]
  - Back pain [Recovered/Resolved]
  - Splenomegaly [Unknown]
  - Lymph node pain [Unknown]
  - Chest discomfort [Unknown]
  - Malaise [Unknown]
  - Skin discolouration [Unknown]
  - Blood potassium increased [Unknown]
  - Myopathy [Unknown]
  - Tinnitus [Not Recovered/Not Resolved]
  - Headache [Recovered/Resolved]
  - Condition aggravated [Unknown]
  - Product use in unapproved indication [Unknown]
  - Prescription drug used without a prescription [Unknown]

NARRATIVE: CASE EVENT DATE: 20220401
